FAERS Safety Report 6049165-9 (Version None)
Quarter: 2009Q1

REPORT INFORMATION
  Report Type: 
  Country: None (occurrence: None)
  Receive Date: 20090123
  Receipt Date: 20090102
  Transmission Date: 20090719
  Serious: No
  Sender: FDA-Public Use
  Company Number: PHEH2009US00440

PATIENT
  Sex: Female

DRUGS (14)
  1. TASIGNA [Suspect]
     Dosage: 400 MG, BID
     Route: 048
     Dates: start: 20081111
  2. MAALOX                                  /NET/ [Concomitant]
     Dosage: UNK
  3. NEURONTIN [Concomitant]
     Dosage: UNK
  4. REGLAN [Concomitant]
     Dosage: UNK
  5. MELOXICAM [Concomitant]
  6. LEXAPRO [Concomitant]
  7. MULTIVITAMIN ^LAPPE^ [Concomitant]
     Dosage: UNK
  8. CALTRATE [Concomitant]
     Dosage: UNK
  9. ASPIRIN [Concomitant]
  10. AMOXIL ^AYERST LAB^ [Concomitant]
     Dosage: UNK
  11. NITROGLYCERIN [Concomitant]
  12. ZOFRAN [Concomitant]
     Dosage: UNK
  13. ^FIBER^ [Concomitant]
     Dosage: UNK
  14. SCOPOLAMINE [Concomitant]
     Dosage: UNK

REACTIONS (4)
  - CHEST DISCOMFORT [None]
  - DYSPEPSIA [None]
  - GASTROINTESTINAL DISORDER [None]
  - NAUSEA [None]
